FAERS Safety Report 6981674-8 (Version None)
Quarter: 2010Q3

REPORT INFORMATION
  Report Type: 
  Country: None (occurrence: None)
  Receive Date: 20100914
  Receipt Date: 20090908
  Transmission Date: 20110219
  Serious: No
  Sender: FDA-Public Use
  Company Number: US-PFIZER INC-2009267693

PATIENT
  Sex: Male
  Weight: 104.3 kg

DRUGS (2)
  1. LYRICA [Suspect]
     Dosage: 200 MG, 1X/DAY
     Route: 048
     Dates: start: 20070301
  2. TAMSULOSIN HYDROCHLORIDE [Concomitant]
     Dosage: UNK

REACTIONS (1)
  - SEXUAL DYSFUNCTION [None]
